FAERS Safety Report 21064353 (Version 4)
Quarter: 2022Q3

REPORT INFORMATION
  Report Type: Report from Study
  Country: US (occurrence: US)
  Receive Date: 20220711
  Receipt Date: 20220813
  Transmission Date: 20221026
  Serious: Yes (Other)
  Sender: FDA-Public Use
  Company Number: US-NOVARTISPH-NVSC2022US155820

PATIENT
  Sex: Female

DRUGS (2)
  1. PIQRAY [Suspect]
     Active Substance: ALPELISIB
     Indication: Breast cancer metastatic
     Dosage: 200 MG, QD
     Route: 048
  2. PIQRAY [Suspect]
     Active Substance: ALPELISIB
     Route: 048

REACTIONS (5)
  - Blindness [Recovering/Resolving]
  - Oral pain [Recovered/Resolved]
  - Dry eye [Recovering/Resolving]
  - Eating disorder [Recovered/Resolved]
  - Inappropriate schedule of product administration [Not Recovered/Not Resolved]
